FAERS Safety Report 9517287 (Version 1)
Quarter: 2013Q3

REPORT INFORMATION
  Report Type: Spontaneous
  Country: US (occurrence: US)
  Receive Date: 20130911
  Receipt Date: 20130911
  Transmission Date: 20140515
  Serious: No
  Sender: FDA-Public Use
  Company Number: US-ASTRAZENECA-2013SE54982

PATIENT
  Sex: Female
  Weight: 69.4 kg

DRUGS (1)
  1. SYMBICORT [Suspect]
     Indication: ASTHMA
     Dosage: 80/4.5MCG, 2 PUFFS BID
     Route: 055
     Dates: start: 201307

REACTIONS (1)
  - Condition aggravated [Unknown]
